FAERS Safety Report 24283121 (Version 2)
Quarter: 2024Q4

REPORT INFORMATION
  Report Type: Spontaneous
  Country: JP (occurrence: JP)
  Receive Date: 20240904
  Receipt Date: 20241104
  Transmission Date: 20250114
  Serious: Yes (Other)
  Sender: BRISTOL-MYERS SQUIBB COMPANY
  Company Number: JP-BRISTOL-MYERS SQUIBB COMPANY-2024-140714

PATIENT
  Age: 70 Year
  Sex: Male
  Weight: 65 kg

DRUGS (4)
  1. PACLITAXEL [Suspect]
     Active Substance: PACLITAXEL
     Indication: Non-small cell lung cancer
     Dosage: NUMBER OF SEPARATE DOSAGES UNKNOWN
     Dates: start: 20230810, end: 20231116
  2. DURVALUMAB [Suspect]
     Active Substance: DURVALUMAB
     Indication: Non-small cell lung cancer
     Route: 041
     Dates: start: 20230810
  3. TREMELIMUMAB [Suspect]
     Active Substance: TREMELIMUMAB
     Indication: Non-small cell lung cancer
     Route: 041
     Dates: start: 20230810, end: 20231220
  4. CARBOPLATIN [Suspect]
     Active Substance: CARBOPLATIN
     Indication: Non-small cell lung cancer
     Dosage: 5AUC, NUMBER OF SEPARATE DOSAGES UNKNOWN
     Dates: start: 20230810, end: 20231026

REACTIONS (10)
  - White blood cell count decreased [Recovered/Resolved]
  - Adrenal insufficiency [Recovering/Resolving]
  - Nausea [Recovered/Resolved]
  - Decreased appetite [Recovered/Resolved]
  - Alopecia [Recovering/Resolving]
  - Blood glucose increased [Not Recovered/Not Resolved]
  - Malaise [Recovering/Resolving]
  - COVID-19 [Recovered/Resolved]
  - Neutrophil count decreased [Recovered/Resolved]
  - Radiation skin injury [Not Recovered/Not Resolved]

NARRATIVE: CASE EVENT DATE: 20230812
